FAERS Safety Report 7478958-6 (Version None)
Quarter: 2011Q2

REPORT INFORMATION
  Report Type: 
  Country: None (occurrence: None)
  Receive Date: 20110511
  Receipt Date: 20110511
  Transmission Date: 20111010
  Serious: Yes (Life-Threatening, Other)
  Sender: FDA-Public Use
  Company Number: None

PATIENT
  Age: 61 Year
  Sex: Female
  Weight: 78.4723 kg

DRUGS (3)
  1. RISPERIDONE [Suspect]
     Indication: FEAR
     Dosage: ,25 MG 3X DAY 3X A DAY PO
     Route: 048
     Dates: start: 20110312, end: 20110405
  2. RISPERIDONE [Suspect]
     Indication: ANXIETY
     Dosage: ,25 MG 3X DAY 3X A DAY PO
     Route: 048
     Dates: start: 20110312, end: 20110405
  3. RISPERIDONE [Suspect]
     Indication: INSOMNIA
     Dosage: ,25 MG 3X DAY 3X A DAY PO
     Route: 048
     Dates: start: 20110312, end: 20110405

REACTIONS (8)
  - NAUSEA [None]
  - HYPERTENSION [None]
  - ANXIETY [None]
  - PRODUCT SUBSTITUTION ISSUE [None]
  - HEADACHE [None]
  - DRUG HYPERSENSITIVITY [None]
  - GLUCOSE TOLERANCE IMPAIRED [None]
  - VAGINAL HAEMORRHAGE [None]
